FAERS Safety Report 8311152-5 (Version None)
Quarter: 2012Q2

REPORT INFORMATION
  Report Type: 
  Country: None (occurrence: None)
  Receive Date: 20120425
  Receipt Date: 20111028
  Transmission Date: 20120825
  Serious: No
  Sender: FDA-Public Use
  Company Number: US-MYLANLABS-2011S1022430

PATIENT
  Sex: Female

DRUGS (3)
  1. LORAZEPAM [Suspect]
     Route: 048
     Dates: start: 20111001
  2. LORAZEPAM [Suspect]
     Indication: INSOMNIA
     Route: 048
     Dates: start: 20111001
  3. LORAZEPAM [Suspect]
     Route: 048
     Dates: start: 20111001

REACTIONS (3)
  - DRUG INEFFECTIVE FOR UNAPPROVED INDICATION [None]
  - INSOMNIA [None]
  - TREATMENT NONCOMPLIANCE [None]
